FAERS Safety Report 9725351 (Version 9)
Quarter: 2015Q2

REPORT INFORMATION
  Report Type: Spontaneous
  Country: US (occurrence: None)
  Receive Date: 20131129
  Receipt Date: 20150408
  Transmission Date: 20150821
  Serious: Yes (Other)
  Sender: FDA-Public Use
  Company Number: ADR-2013-02165

PATIENT
  Age: 46 Year
  Sex: Female

DRUGS (8)
  1. BACLOFEN INTRATHECAL [Suspect]
     Active Substance: BACLOFEN
     Indication: PAIN
     Dosage: SEE B5
  2. KLONOPIN [Suspect]
     Active Substance: CLONAZEPAM
  3. DILAUDID [Suspect]
     Active Substance: HYDROMORPHONE HYDROCHLORIDE
     Indication: PAIN
     Dosage: SEE B5
  4. VICODIN [Suspect]
     Active Substance: ACETAMINOPHEN\HYDROCODONE BITARTRATE
  5. HEROIN [Suspect]
     Active Substance: DIACETYLMORPHINE
  6. DILAUDID [Suspect]
     Active Substance: HYDROMORPHONE HYDROCHLORIDE
     Dosage: 6MG/DAY WITH 4MG OF RESERVE
  7. PERCOCET [Suspect]
     Active Substance: ACETAMINOPHEN\OXYCODONE HYDROCHLORIDE
  8. VANCOMYCIN [Suspect]
     Active Substance: VANCOMYCIN

REACTIONS (33)
  - Diarrhoea [None]
  - Localised intraabdominal fluid collection [None]
  - Implant site infection [None]
  - Bed bug infestation [None]
  - Implant site extravasation [None]
  - Drug effect variable [None]
  - Visual impairment [None]
  - Abdominal distension [None]
  - Therapeutic product ineffective [None]
  - Spinal disorder [None]
  - Intervertebral disc protrusion [None]
  - Neck mass [None]
  - Overdose [None]
  - Device related infection [None]
  - Staphylococcal infection [None]
  - Pain [None]
  - Implant site swelling [None]
  - Breakthrough pain [None]
  - Hypoaesthesia [None]
  - Abdominal pain upper [None]
  - Cerebrospinal fluid leakage [None]
  - Weight increased [None]
  - Dysstasia [None]
  - Limb discomfort [None]
  - Implant site mass [None]
  - Fall [None]
  - Impaired self-care [None]
  - Device computer issue [None]
  - Posture abnormal [None]
  - Wound dehiscence [None]
  - Feeling drunk [None]
  - Road traffic accident [None]
  - Device failure [None]
